FAERS Safety Report 13109938 (Version 1)
Quarter: 2017Q1

REPORT INFORMATION
  Report Type: Spontaneous
  Country: US (occurrence: US)
  Receive Date: 20170112
  Receipt Date: 20170112
  Transmission Date: 20170428
  Serious: Yes (Other)
  Sender: FDA-Public Use
  Company Number: US-ROCHE-1101299

PATIENT
  Age: 52 Year
  Sex: Male

DRUGS (4)
  1. TENORMIN [Concomitant]
     Active Substance: ATENOLOL
     Route: 065
  2. LIDOCAINE. [Concomitant]
     Active Substance: LIDOCAINE
     Route: 065
  3. ASPIRIN. [Concomitant]
     Active Substance: ASPIRIN
  4. ACTIVASE [Suspect]
     Active Substance: ALTEPLASE
     Indication: ACUTE MYOCARDIAL INFARCTION
     Route: 065

REACTIONS (1)
  - Cardiac failure [Unknown]
